FAERS Safety Report 8843508 (Version 2)
Quarter: 2012Q4

REPORT INFORMATION
  Report Type: 
  Country: US (occurrence: US)
  Receive Date: 20121016
  Receipt Date: 20121220
  Transmission Date: 20130627
  Serious: Yes (Hospitalization)
  Sender: FDA-Public Use
  Company Number: US-ELI_LILLY_AND_COMPANY-US201208002343

PATIENT
  Age: 47 Year
  Sex: Male
  Weight: 100.23 kg

DRUGS (2)
  1. EFFIENT [Suspect]
     Indication: ANTICOAGULANT THERAPY
     Dosage: 10 mg, qd
     Dates: start: 20120624
  2. ATORVASTATIN [Concomitant]
     Dosage: UNK UNK, qd

REACTIONS (1)
  - Acute myocardial infarction [Unknown]
